FAERS Safety Report 5140828-6 (Version None)
Quarter: 2006Q4

REPORT INFORMATION
  Report Type: 
  Country: None (occurrence: None)
  Receive Date: 20061026
  Receipt Date: 20061019
  Transmission Date: 20070319
  Serious: Yes (Hospitalization)
  Sender: FDA-Public Use
  Company Number: GXKR2006PT06556

PATIENT
  Age: 3 Year
  Sex: Male

DRUGS (1)
  1. METHADONE HCL [Suspect]

REACTIONS (23)
  - ACCIDENTAL DRUG INTAKE BY CHILD [None]
  - BLOOD BICARBONATE ABNORMAL [None]
  - BLOOD GLUCOSE INCREASED [None]
  - BLOOD PH INCREASED [None]
  - BLOOD PRESSURE DECREASED [None]
  - BODY TEMPERATURE DECREASED [None]
  - COMA [None]
  - COORDINATION ABNORMAL [None]
  - DRUG LEVEL [None]
  - DRUG TOXICITY [None]
  - DYSARTHRIA [None]
  - DYSPNOEA [None]
  - ENCEPHALOPATHY [None]
  - HEAD CIRCUMFERENCE ABNORMAL [None]
  - HEMIPLEGIA [None]
  - HYDROCEPHALUS [None]
  - LOSS OF CONSCIOUSNESS [None]
  - MIOSIS [None]
  - MUTISM [None]
  - NERVOUS SYSTEM DISORDER [None]
  - NUCLEAR MAGNETIC RESONANCE IMAGING BRAIN ABNORMAL [None]
  - OCULOCEPHALOGYRIC REFLEX ABSENT [None]
  - RESPIRATORY DISORDER [None]
